FAERS Safety Report 6508559-5 (Version None)
Quarter: 2009Q4

REPORT INFORMATION
  Report Type: 
  Country: None (occurrence: None)
  Receive Date: 20091221
  Receipt Date: 20091211
  Transmission Date: 20100525
  Serious: Yes (Hospitalization, Other)
  Sender: FDA-Public Use
  Company Number: FR-ABBOTT-09P-056-0614119-00

PATIENT
  Age: 43 Year
  Sex: Male

DRUGS (1)
  1. HUMIRA [Suspect]
     Indication: RHEUMATOID ARTHRITIS
     Dates: start: 20080101

REACTIONS (5)
  - ARTHRITIS BACTERIAL [None]
  - ARTHRITIS REACTIVE [None]
  - ARTHROPOD STING [None]
  - CELLULITIS [None]
  - LYMPHANGITIS [None]
